FAERS Safety Report 6407357-0 (Version None)
Quarter: 2009Q4

REPORT INFORMATION
  Report Type: 
  Country: None (occurrence: None)
  Receive Date: 20091020
  Receipt Date: 20091013
  Transmission Date: 20100525
  Serious: Yes (Hospitalization)
  Sender: FDA-Public Use
  Company Number: GR-AMGEN-UK369144

PATIENT
  Age: 70 Year
  Sex: Male

DRUGS (2)
  1. NPLATE [Suspect]
     Indication: IDIOPATHIC THROMBOCYTOPENIC PURPURA
     Route: 065
  2. CORTICOSTEROIDS [Concomitant]
     Route: 065
     Dates: end: 20091001

REACTIONS (2)
  - PETECHIAE [None]
  - PLATELET COUNT DECREASED [None]
